FAERS Safety Report 17279279 (Version 1)
Quarter: 2020Q1

REPORT INFORMATION
  Report Type: Report from Study
  Country: US (occurrence: US)
  Receive Date: 20200116
  Receipt Date: 20200116
  Transmission Date: 20200409
  Serious: Yes (Other)
  Sender: FDA-Public Use
  Company Number: NVSC2020US006232

PATIENT
  Age: 74 Year
  Sex: Male

DRUGS (1)
  1. ENTRESTO [Suspect]
     Active Substance: SACUBITRIL\VALSARTAN
     Indication: CARDIAC FAILURE CONGESTIVE
     Dosage: 1 DF, (24 MG OF SACUBITRIL/ 26 MG OF VALSARTAN), BID
     Route: 048
     Dates: start: 2019

REACTIONS (2)
  - Chronic obstructive pulmonary disease [Unknown]
  - Cough [Unknown]

NARRATIVE: CASE EVENT DATE: 201912
